FAERS Safety Report 11566834 (Version 2)
Quarter: 2017Q1

REPORT INFORMATION
  Report Type: Report from Study
  Country: US (occurrence: US)
  Receive Date: 20150929
  Receipt Date: 20170228
  Transmission Date: 20170428
  Serious: Yes (Hospitalization)
  Sender: FDA-Public Use
  Company Number: US-ROCHE-1639034

PATIENT
  Sex: Male
  Weight: 118.04 kg

DRUGS (3)
  1. ESBRIET [Suspect]
     Active Substance: PIRFENIDONE
     Indication: IDIOPATHIC PULMONARY FIBROSIS
     Dosage: 3 CAPSULES.
     Route: 048
     Dates: start: 20150428
  2. ESBRIET [Suspect]
     Active Substance: PIRFENIDONE
     Dosage: THREE CAPSULES THREE TIMES A DAY;ONGOING;YES
     Route: 048
     Dates: start: 2013
  3. OXYGEN. [Concomitant]
     Active Substance: OXYGEN

REACTIONS (10)
  - Nausea [Unknown]
  - Hypoacusis [Unknown]
  - Influenza like illness [Unknown]
  - Rash [Not Recovered/Not Resolved]
  - Somnolence [Recovered/Resolved with Sequelae]
  - Malaise [Unknown]
  - Asthenia [Not Recovered/Not Resolved]
  - Hypertension [Unknown]
  - Dyspepsia [Unknown]
  - Dyspnoea [Unknown]
